FAERS Safety Report 5828835-9 (Version None)
Quarter: 2008Q3

REPORT INFORMATION
  Report Type: 
  Country: None (occurrence: None)
  Receive Date: 20080729
  Receipt Date: 20080729
  Transmission Date: 20090109
  Serious: Yes (Hospitalization)
  Sender: FDA-Public Use
  Company Number: None

PATIENT
  Age: 76 Year
  Sex: Male
  Weight: 61.63 kg

DRUGS (1)
  1. DIGOXIN [Suspect]
     Dosage: .125 MG EVERY DAY PO
     Route: 048
     Dates: start: 20080221, end: 20080505

REACTIONS (5)
  - CHEST PAIN [None]
  - DIZZINESS [None]
  - DYSPNOEA [None]
  - NAUSEA [None]
  - VOMITING [None]
